FAERS Safety Report 6403581-1 (Version None)
Quarter: 2009Q4

REPORT INFORMATION
  Report Type: 
  Country: None (occurrence: None)
  Receive Date: 20091015
  Receipt Date: 20091015
  Transmission Date: 20100525
  Serious: Yes (Hospitalization)
  Sender: FDA-Public Use
  Company Number: None

PATIENT
  Age: 31 Year
  Sex: Female

DRUGS (1)
  1. SEPTRA [Suspect]
     Dosage: 1 TAB BID PO
     Route: 048

REACTIONS (1)
  - ANAPHYLACTIC REACTION [None]
